FAERS Safety Report 7454542-5 (Version None)
Quarter: 2011Q2

REPORT INFORMATION
  Report Type: 
  Country: None (occurrence: None)
  Receive Date: 20110503
  Receipt Date: 20110425
  Transmission Date: 20111010
  Serious: Yes (Other)
  Sender: FDA-Public Use
  Company Number: PHHY2011US10694

PATIENT
  Age: 63 Year
  Sex: Female

DRUGS (3)
  1. RECLAST [Suspect]
  2. NASALCROM [Concomitant]
  3. BETA BLOCKING AGENTS [Concomitant]

REACTIONS (4)
  - ARRHYTHMIA [None]
  - HEADACHE [None]
  - BLOOD PRESSURE INCREASED [None]
  - TACHYCARDIA [None]
